FAERS Safety Report 5659309-6 (Version None)
Quarter: 2008Q1

REPORT INFORMATION
  Report Type: 
  Country: None (occurrence: None)
  Receive Date: 20080311
  Receipt Date: 20070624
  Transmission Date: 20080703
  Serious: No
  Sender: FDA-Public Use
  Company Number: US-BAYER-200712010BCC

PATIENT
  Age: 16 Year
  Sex: Female
  Weight: 75 kg

DRUGS (1)
  1. ALEVE [Suspect]
     Indication: DYSMENORRHOEA
     Dosage: UNIT DOSE: 220 MG
     Route: 048
     Dates: start: 20070624

REACTIONS (2)
  - ILL-DEFINED DISORDER [None]
  - NO ADVERSE EVENT [None]
